FAERS Safety Report 8574565-2 (Version None)
Quarter: 2012Q3

REPORT INFORMATION
  Report Type: 
  Country: None (occurrence: None)
  Receive Date: 20120806
  Receipt Date: 20120730
  Transmission Date: 20120928
  Serious: Yes (Other)
  Sender: FDA-Public Use
  Company Number: JP-MERCK-1208JPN001609

PATIENT

DRUGS (1)
  1. FAMOTIDINE [Suspect]
     Route: 048

REACTIONS (2)
  - THROMBOSIS [None]
  - PULMONARY EMBOLISM [None]
